FAERS Safety Report 9988921 (Version 1)
Quarter: 2014Q1

REPORT INFORMATION
  Report Type: Report from Study
  Country: US (occurrence: US)
  Receive Date: 20140310
  Receipt Date: 20140310
  Transmission Date: 20141002
  Serious: No
  Sender: FDA-Public Use
  Company Number: US-ABBVIE-13P-163-1128979-00

PATIENT
  Age: 56 Year
  Sex: Male

DRUGS (10)
  1. HUMIRA [Suspect]
     Indication: COLITIS ULCERATIVE
  2. PREDNISONE [Suspect]
     Indication: PRODUCT USED FOR UNKNOWN INDICATION
     Dosage: TAPERING DOWN
  3. IMURAN [Concomitant]
     Indication: COLITIS ULCERATIVE
     Dosage: 150 MG DAILY
  4. AMLODIPINE [Concomitant]
     Indication: HYPERTENSION
  5. SIMVASTATIN [Concomitant]
     Indication: BLOOD CHOLESTEROL INCREASED
  6. HYDROCHLOROTHIAZIDE [Concomitant]
     Indication: HYPERTENSION
  7. HYDROCHLOROTHIAZIDE [Concomitant]
     Indication: NEPHROLITHIASIS
  8. GABAPENTIN [Concomitant]
     Indication: NERVE COMPRESSION
     Dosage: 100 MG DAILY
  9. FOLIC ACID [Concomitant]
     Indication: PROPHYLAXIS
     Dosage: 400 MG DAILY
  10. OMEPRAZOLE [Concomitant]
     Indication: ABDOMINAL DISCOMFORT

REACTIONS (1)
  - Diarrhoea [Not Recovered/Not Resolved]
